FAERS Safety Report 10873250 (Version 1)
Quarter: 2015Q1

REPORT INFORMATION
  Report Type: Spontaneous
  Country: BE (occurrence: None)
  Receive Date: 20150223
  Receipt Date: 20150223
  Transmission Date: 20150721
  Serious: Yes (Other)
  Sender: FDA-Public Use
  Company Number: ADR-2015-00367

PATIENT
  Age: 56 Year
  Sex: Male

DRUGS (4)
  1. BACLOFEN ORAL [Suspect]
     Active Substance: BACLOFEN
     Indication: ALCOHOL WITHDRAWAL SYNDROME
     Dosage: 175 MG/DAY
  2. BACLOFEN ORAL [Suspect]
     Active Substance: BACLOFEN
     Indication: ALCOHOL WITHDRAWAL SYNDROME
     Dates: start: 201111
  3. BACLOFEN. [Suspect]
     Active Substance: BACLOFEN
     Indication: ALCOHOL WITHDRAWAL SYNDROME
     Dosage: 500 MG/DAY, ORAL
     Route: 048
  4. BACLOFEN. [Suspect]
     Active Substance: BACLOFEN
     Indication: ALCOHOL WITHDRAWAL SYNDROME
     Dosage: 200 MG/DAY, ORAL
     Route: 048

REACTIONS (16)
  - Incontinence [None]
  - Insomnia [None]
  - Paraesthesia [None]
  - Renal failure [None]
  - Foot amputation [None]
  - Myoclonus [None]
  - Sense of oppression [None]
  - Disturbance in attention [None]
  - Off label use [None]
  - Respiratory disorder [None]
  - Somnolence [None]
  - Blister [None]
  - Neuropathic arthropathy [None]
  - Impaired work ability [None]
  - Perforated ulcer [None]
  - Staphylococcal skin infection [None]

NARRATIVE: CASE EVENT DATE: 20111101
